FAERS Safety Report 6972714-0 (Version None)
Quarter: 2010Q3

REPORT INFORMATION
  Report Type: 
  Country: None (occurrence: None)
  Receive Date: 20100909
  Receipt Date: 20090727
  Transmission Date: 20110219
  Serious: No
  Sender: FDA-Public Use
  Company Number: US-KINGPHARMUSA00001-K200900889

PATIENT
  Sex: Male
  Weight: 16.344 kg

DRUGS (2)
  1. CYTOMEL [Suspect]
     Dosage: 40 MG, SINGLE
     Route: 048
     Dates: start: 20090622, end: 20090622
  2. SYNTHROID [Suspect]
     Dosage: 450 MCG, SINGLE
     Route: 048
     Dates: start: 20090622, end: 20090622

REACTIONS (2)
  - ACCIDENTAL OVERDOSE [None]
  - THYROID FUNCTION TEST ABNORMAL [None]
